FAERS Safety Report 8411977-1 (Version None)
Quarter: 2012Q2

REPORT INFORMATION
  Report Type: 
  Country: None (occurrence: None)
  Receive Date: 20120605
  Receipt Date: 20120501
  Transmission Date: 20120825
  Serious: No
  Sender: FDA-Public Use
  Company Number: US-AMGEN-USASP2012027446

PATIENT
  Age: 54 Year
  Sex: Female

DRUGS (2)
  1. ENBREL [Suspect]
     Indication: RHEUMATOID ARTHRITIS
     Dosage: 50 MG, Q2WK
     Dates: start: 20000601
  2. HUMIRA [Concomitant]

REACTIONS (7)
  - INFECTION [None]
  - DIVERTICULITIS [None]
  - UPPER RESPIRATORY TRACT INFECTION [None]
  - CYSTITIS [None]
  - PARAESTHESIA [None]
  - HYPOAESTHESIA [None]
  - SKIN INFECTION [None]
